FAERS Safety Report 7287668-X (Version None)
Quarter: 2011Q1

REPORT INFORMATION
  Report Type: 
  Country: None (occurrence: None)
  Receive Date: 20110211
  Receipt Date: 20110203
  Transmission Date: 20110831
  Serious: Yes (Death, Hospitalization, Other)
  Sender: FDA-Public Use
  Company Number: US-ELI_LILLY_AND_COMPANY-US201011003020

PATIENT
  Sex: Female

DRUGS (1)
  1. FORTEO [Suspect]
     Dosage: 20 UG, DAILY (1/D)
     Route: 058
     Dates: start: 20090211

REACTIONS (17)
  - CARDIO-RESPIRATORY ARREST [None]
  - WEIGHT DECREASED [None]
  - ANXIETY [None]
  - HYPERTENSION [None]
  - URINARY TRACT INFECTION [None]
  - HEPATIC MASS [None]
  - LEUKOCYTOSIS [None]
  - MENTAL STATUS CHANGES [None]
  - DEPRESSION [None]
  - HAEMATURIA [None]
  - BACK PAIN [None]
  - RESPIRATORY DISTRESS [None]
  - VERTEBRAL COLUMN MASS [None]
  - DEMENTIA [None]
  - HYPOPHAGIA [None]
  - PULMONARY MASS [None]
  - RENAL FAILURE CHRONIC [None]
